FAERS Safety Report 16458617 (Version 1)
Quarter: 2019Q2

REPORT INFORMATION
  Report Type: Spontaneous
  Country: US (occurrence: US)
  Receive Date: 20190620
  Receipt Date: 20190620
  Transmission Date: 20190711
  Serious: No
  Sender: FDA-Public Use
  Company Number: US-THERAPEUTICSMD-2019TMD00513

PATIENT
  Sex: Female

DRUGS (1)
  1. IMVEXXY [Suspect]
     Active Substance: ESTRADIOL
     Indication: DYSPAREUNIA
     Dosage: UNK, 1X/DAY
     Route: 067
     Dates: start: 201903, end: 201903

REACTIONS (3)
  - Vulvovaginal discomfort [Unknown]
  - Hypersensitivity [Unknown]
  - Vulvovaginal injury [Unknown]

NARRATIVE: CASE EVENT DATE: 201903
